FAERS Safety Report 9096931 (Version 2)
Quarter: 2013Q1

REPORT INFORMATION
  Report Type: Spontaneous
  Country: US (occurrence: None)
  Receive Date: 20130124
  Receipt Date: 20130215
  Transmission Date: 20140127
  Serious: Yes (Death)
  Sender: FDA-Public Use
  Company Number: 1301-040

PATIENT
  Sex: 0

DRUGS (1)
  1. EYLEA (AFLIBERCEPT) (AFLIBERCEPT) [Suspect]
     Dates: start: 20120321

REACTIONS (2)
  - Death [None]
  - Neoplasm malignant [None]
